FAERS Safety Report 22166217 (Version 1)
Quarter: 2023Q1

REPORT INFORMATION
  Report Type: Spontaneous
  Country: US (occurrence: None)
  Receive Date: 20230331
  Receipt Date: 20230331
  Transmission Date: 20230417
  Serious: Yes (Other)
  Sender: FDA-Public Use
  Company Number: None

PATIENT
  Age: 56 Year
  Sex: Female

DRUGS (5)
  1. MYCOPHENOLIC ACID [Suspect]
     Active Substance: MYCOPHENOLIC ACID
     Indication: Organ transplant
     Dosage: FREQUENCY : TWICE A DAY;?
     Route: 048
  2. TACROLIMUS [Suspect]
     Active Substance: TACROLIMUS
     Indication: Organ transplant
     Dosage: OTHER FREQUENCY : 2 MG QAM + 1MG QPM;?
     Route: 048
  3. REMDESIVIR [Suspect]
     Active Substance: REMDESIVIR
  4. ATORVASTATIN [Concomitant]
     Active Substance: ATORVASTATIN
  5. Levothyroxine 0.088 mg [Concomitant]

REACTIONS (2)
  - COVID-19 [None]
  - Feeling abnormal [None]

NARRATIVE: CASE EVENT DATE: 20230324
